FAERS Safety Report 19461726 (Version 1)
Quarter: 2021Q2

REPORT INFORMATION
  Report Type: Report from Study
  Country: US (occurrence: US)
  Receive Date: 20210625
  Receipt Date: 20210625
  Transmission Date: 20210717
  Serious: Yes (Other)
  Sender: FDA-Public Use
  Company Number: US-BIOGEN-2021BI00969949

PATIENT
  Sex: Female

DRUGS (18)
  1. MELOXICAM. [Concomitant]
     Active Substance: MELOXICAM
     Route: 065
  2. LEVOTHYROXINE/LIOTHYRONIN [Concomitant]
     Route: 065
  3. TIZANIDINE HYDROCHLORIDE. [Concomitant]
     Active Substance: TIZANIDINE HYDROCHLORIDE
     Route: 065
  4. NIFEDIPINE. [Concomitant]
     Active Substance: NIFEDIPINE
     Route: 065
  5. TECFIDERA [Suspect]
     Active Substance: DIMETHYL FUMARATE
     Indication: MULTIPLE SCLEROSIS
     Dosage: MAINTENANCE DOSE
     Route: 048
     Dates: start: 20180619
  6. MORPHINE SULFATE. [Concomitant]
     Active Substance: MORPHINE SULFATE
     Route: 065
  7. METOPROLOL TARTRATE. [Concomitant]
     Active Substance: METOPROLOL TARTRATE
     Route: 065
  8. OMEPRAZOLE. [Concomitant]
     Active Substance: OMEPRAZOLE
     Route: 065
  9. BACLOFEN. [Concomitant]
     Active Substance: BACLOFEN
     Route: 065
  10. ASPIRIN 81 [Concomitant]
     Active Substance: ASPIRIN
     Route: 065
  11. ELIQUIS [Concomitant]
     Active Substance: APIXABAN
     Route: 065
  12. CRESTOR [Concomitant]
     Active Substance: ROSUVASTATIN CALCIUM
     Route: 065
  13. TECFIDERA [Suspect]
     Active Substance: DIMETHYL FUMARATE
     Route: 048
     Dates: end: 202012
  14. MOTRIN [Concomitant]
     Active Substance: IBUPROFEN
     Route: 065
  15. MECLIZINE HYDROCHLORIDE. [Concomitant]
     Active Substance: MECLIZINE HYDROCHLORIDE
     Route: 065
  16. CALCIUM CITRATE + D3 [Concomitant]
     Route: 065
  17. CLONAZEPAM. [Concomitant]
     Active Substance: CLONAZEPAM
     Route: 065
  18. PAROXETINE HCL [Concomitant]
     Active Substance: PAROXETINE HYDROCHLORIDE
     Route: 065

REACTIONS (3)
  - Anaphylactic shock [Recovered/Resolved]
  - General physical health deterioration [Unknown]
  - Hypersensitivity [Recovered/Resolved]
